FAERS Safety Report 4495787-6 (Version None)
Quarter: 2004Q4

REPORT INFORMATION
  Report Type: 
  Country: None (occurrence: None)
  Receive Date: 20041104
  Receipt Date: 20041019
  Transmission Date: 20050328
  Serious: No
  Sender: FDA-Public Use
  Company Number: DSA_60431_2004

PATIENT
  Age: 41 Year
  Sex: Male
  Weight: 90.7194 kg

DRUGS (5)
  1. DIASTAT [Suspect]
     Indication: GRAND MAL CONVULSION
     Dosage: 20 MG PRN RC
     Route: 054
     Dates: start: 20000101
  2. DIAZEPAM [Concomitant]
  3. LAMICTAL [Concomitant]
  4. LOPRESSOR [Concomitant]
  5. ZANTAC [Concomitant]

REACTIONS (6)
  - CONVULSION [None]
  - MEDICAL DEVICE COMPLICATION [None]
  - PROCTALGIA [None]
  - PRURITUS [None]
  - RECTAL HAEMORRHAGE [None]
  - UNDERDOSE [None]
